FAERS Safety Report 8594050-1 (Version None)
Quarter: 2012Q3

REPORT INFORMATION
  Report Type: 
  Country: None (occurrence: None)
  Receive Date: 20120814
  Receipt Date: 20120807
  Transmission Date: 20120928
  Serious: Yes (Other)
  Sender: FDA-Public Use
  Company Number: GXKR2009GB09585

PATIENT
  Age: 40 Year
  Sex: Male

DRUGS (10)
  1. RISPERIDONE [Suspect]
  2. MIRTAZAPINE [Suspect]
  3. DRUG USED IN DIABETES [Concomitant]
     Indication: TYPE 2 DIABETES MELLITUS
  4. ABILIFY [Suspect]
     Indication: SCHIZOAFFECTIVE DISORDER
  5. DULOXETINE HYDROCHLORIDE [Suspect]
  6. ABILIFY [Suspect]
     Indication: METABOLIC SYNDROME
     Dosage: 15 MG, QD (IN NIGHT)
     Route: 048
     Dates: start: 20080401
  7. VALPROIC ACID [Suspect]
  8. QUETIAPINE [Suspect]
  9. EFFEXOR [Concomitant]
     Indication: DEPRESSION
     Dosage: 225 MG QD (IN NIGHT)
     Route: 048
  10. LITHIUM CARBONATE [Concomitant]
     Dosage: 600 MG
     Route: 048

REACTIONS (3)
  - HYPOTHYROIDISM [None]
  - METABOLIC SYNDROME [None]
  - LIVER FUNCTION TEST ABNORMAL [None]
